FAERS Safety Report 22302882 (Version 1)
Quarter: 2023Q2

REPORT INFORMATION
  Report Type: Spontaneous
  Country: GB (occurrence: GB)
  Receive Date: 20230510
  Receipt Date: 20230510
  Transmission Date: 20230721
  Serious: Yes (Other)
  Sender: FDA-Public Use
  Company Number: None

PATIENT
  Age: 72 Year

DRUGS (15)
  1. OMEPRAZOLE [Suspect]
     Active Substance: OMEPRAZOLE
     Dosage: 2 SEPARATED DOSES
  2. TRIPTORELIN [Concomitant]
     Active Substance: TRIPTORELIN
     Dosage: EVERY 6 MONTHS 1 VIAL - PATIENT WIFE CONFIRMED HAD 6/9/22 AND NEXT DUE 7/3/23
  3. DOXYCYCLINE [Concomitant]
     Active Substance: DOXYCYCLINE
     Dosage: TWO TO BE TAKEN ON THE FIRST DAY THEN ONE TO BE TAKEN EACH DAY 6 CAPSULE- NOT COMPLETED COURSE
  4. FINASTERIDE [Concomitant]
     Active Substance: FINASTERIDE
  5. FUROSEMIDE [Concomitant]
     Active Substance: FUROSEMIDE
     Dosage: MORNING. 14 TABLET
  6. LORAZEPAM [Concomitant]
     Active Substance: LORAZEPAM
     Dosage: MAX 2MG PER DAY (PRN)
  7. MEBEVERINE [Concomitant]
     Active Substance: MEBEVERINE
     Dosage: (ONE IN THE MORNING AND ONE IN THE EVENING). SWALLOW WITH AT LEAST 100ML OF WATER. 2 SEPARATED DOSES
  8. METOCLOPRAMIDE [Concomitant]
     Active Substance: METOCLOPRAMIDE
     Indication: Nausea
     Dosage: ONE TO BE TAKEN THREE TIMES A DAY OR AS AND WHEN FOR NAUSEA.
  9. ACETAMINOPHEN [Concomitant]
     Active Substance: ACETAMINOPHEN
     Dosage: TWO TO BE TAKEN EVERY 4-6 HOURS UP TO FOUR TIMES A DAY
  10. PROPRANOLOL [Concomitant]
     Active Substance: PROPRANOLOL HYDROCHLORIDE
     Indication: Anxiety
     Dosage: UP TO THREE TIMES A DAY
  11. TAMSULOSIN [Concomitant]
     Active Substance: TAMSULOSIN
  12. THEOPHYLLINE ANHYDROUS [Concomitant]
     Active Substance: THEOPHYLLINE ANHYDROUS
     Dosage: 2 SEPARATED DOSES
  13. CALCIUM CARBONATE\SODIUM ALGINATE\SODIUM BICARBONATE [Concomitant]
     Active Substance: CALCIUM CARBONATE\SODIUM ALGINATE\SODIUM BICARBONATE
     Dosage: 10ML TO BE TAKEN AFTER MEALS AND AT BEDTIME 500 ML - NOT IN POD
  14. BECLOMETHASONE\FORMOTEROL [Concomitant]
     Active Substance: BECLOMETHASONE\FORMOTEROL
     Dosage: 100MICROGRAMS/DOSE / 6MICROGRAMS/DOSE 2 SEPARATED DOSES
     Route: 055
  15. ALBUTEROL [Concomitant]
     Active Substance: ALBUTEROL
     Dosage: 100MICROGRAMS/DOSE. 1 -2 PUFFS AS REQUIRED 2 X 200 DOSE
     Route: 055

REACTIONS (1)
  - Blood magnesium decreased [Unknown]
